FAERS Safety Report 8238249-2 (Version None)
Quarter: 2012Q1

REPORT INFORMATION
  Report Type: 
  Country: None (occurrence: None)
  Receive Date: 20120327
  Receipt Date: 20120317
  Transmission Date: 20120608
  Serious: Yes (Other)
  Sender: FDA-Public Use
  Company Number: DK-ROCHE-1052821

PATIENT

DRUGS (2)
  1. VERTEPORFIN [Suspect]
     Indication: CHOROIDAL NEOVASCULARISATION
  2. RANIBIZUMAB [Suspect]
     Indication: CHOROIDAL NEOVASCULARISATION
     Route: 050

REACTIONS (1)
  - FEMORAL ARTERY OCCLUSION [None]
